FAERS Safety Report 17264285 (Version 1)
Quarter: 2020Q1

REPORT INFORMATION
  Report Type: Spontaneous
  Country: US (occurrence: US)
  Receive Date: 20200113
  Receipt Date: 20200113
  Transmission Date: 20200409
  Serious: Yes (Hospitalization)
  Sender: FDA-Public Use
  Company Number: US-HLSUS-2020-US-000007

PATIENT
  Sex: Female

DRUGS (5)
  1. CLOZAPINE. [Suspect]
     Active Substance: CLOZAPINE
     Indication: SCHIZOAFFECTIVE DISORDER
     Dates: start: 1993
  2. DEPAKOTE [Concomitant]
     Active Substance: DIVALPROEX SODIUM
  3. LAMICTAL [Concomitant]
     Active Substance: LAMOTRIGINE
  4. HALDOL [Concomitant]
     Active Substance: HALOPERIDOL
  5. LITHIUM. [Concomitant]
     Active Substance: LITHIUM

REACTIONS (3)
  - Suicide attempt [Recovering/Resolving]
  - Obsessive-compulsive disorder [Recovering/Resolving]
  - Mental disorder [Recovering/Resolving]
